FAERS Safety Report 19115718 (Version 2)
Quarter: 2022Q1

REPORT INFORMATION
  Report Type: Spontaneous
  Country: US (occurrence: US)
  Receive Date: 20210409
  Receipt Date: 20220111
  Transmission Date: 20220423
  Serious: Yes (Other)
  Sender: FDA-Public Use
  Company Number: US-PFIZER INC-2021376779

PATIENT
  Age: 42 Year
  Sex: Male

DRUGS (5)
  1. SULFADIAZINE [Suspect]
     Active Substance: SULFADIAZINE
     Indication: Cerebral toxoplasmosis
     Dosage: 1.5 G EVERY 6 HOURS
  2. PYRIMETHAMINE [Concomitant]
     Active Substance: PYRIMETHAMINE
     Indication: Cerebral toxoplasmosis
     Dosage: 100 MG, DAILY
  3. LEUCOVORIN [Concomitant]
     Active Substance: LEUCOVORIN
     Indication: Cerebral toxoplasmosis
     Dosage: 25 MG, DAILY
  4. SULFAMETHOXAZOLE\TRIMETHOPRIM [Concomitant]
     Active Substance: SULFAMETHOXAZOLE\TRIMETHOPRIM
     Indication: Pneumocystis jirovecii pneumonia
     Dosage: THREE TIMES WEEKLY
  5. INVIRASE [Concomitant]
     Active Substance: SAQUINAVIR MESYLATE
     Indication: Antiretroviral therapy
     Dosage: 600 MG THREE TIMES A DAY
     Dates: start: 199608

REACTIONS (3)
  - Acute kidney injury [Recovered/Resolved]
  - Crystalluria [Recovered/Resolved]
  - Treatment noncompliance [Unknown]
